FAERS Safety Report 22110966 (Version 1)
Quarter: 2023Q1

REPORT INFORMATION
  Report Type: Spontaneous
  Country: US (occurrence: US)
  Receive Date: 20230317
  Receipt Date: 20230317
  Transmission Date: 20230418
  Serious: No
  Sender: FDA-Public Use
  Company Number: US-ABBVIE-4313679

PATIENT
  Age: 42 Year
  Sex: Female
  Weight: 63 kg

DRUGS (3)
  1. HUMIRA [Suspect]
     Active Substance: ADALIMUMAB
     Indication: Colitis ulcerative
     Route: 058
     Dates: start: 202106
  2. SULFASALAZINE [Concomitant]
     Active Substance: SULFASALAZINE
     Indication: Colitis ulcerative
  3. FOLIC ACID [Concomitant]
     Active Substance: FOLIC ACID
     Indication: Product used for unknown indication

REACTIONS (4)
  - Mucosal disorder [Not Recovered/Not Resolved]
  - Unevaluable event [Not Recovered/Not Resolved]
  - Pain [Unknown]
  - Product quality issue [Unknown]

NARRATIVE: CASE EVENT DATE: 20230211
